FAERS Safety Report 14172595 (Version 1)
Quarter: 2017Q4

REPORT INFORMATION
  Report Type: Spontaneous
  Country: US (occurrence: None)
  Receive Date: 20171108
  Receipt Date: 20171108
  Transmission Date: 20180321
  Serious: Yes (Disabling, Other)
  Sender: FDA-Public Use
  Company Number: None

PATIENT
  Age: 73 Year
  Sex: Female
  Weight: 61.24 kg

DRUGS (12)
  1. CALCIUM [Concomitant]
     Active Substance: CALCIUM
  2. CRESTOR [Concomitant]
     Active Substance: ROSUVASTATIN CALCIUM
  3. LEXPRO [Concomitant]
  4. VITAMIN D2 [Concomitant]
     Active Substance: ERGOCALCIFEROL
  5. ZITIA [Concomitant]
  6. ARMOUR THYROID [Concomitant]
     Active Substance: THYROID, PORCINE
  7. CLOPIN [Concomitant]
  8. PROLIA [Suspect]
     Active Substance: DENOSUMAB
     Indication: OSTEOPOROSIS
     Dosage: FREQUENCY - 2 PER YR?ROUTE - INJECTION IN ARM
     Dates: start: 20151201
  9. ASPRIN [Concomitant]
     Active Substance: ASPIRIN
  10. VALIUM [Concomitant]
     Active Substance: DIAZEPAM
  11. CHOLESTEROL MED [Concomitant]
  12. IBUPROFEN. [Concomitant]
     Active Substance: IBUPROFEN

REACTIONS (7)
  - Tendon rupture [None]
  - Multiple fractures [None]
  - Urinary tract infection [None]
  - Muscular weakness [None]
  - Tooth fracture [None]
  - Asthenia [None]
  - Pain [None]

NARRATIVE: CASE EVENT DATE: 201708
